FAERS Safety Report 12181082 (Version 1)
Quarter: 2016Q1

REPORT INFORMATION
  Report Type: Other
  Country: FR (occurrence: FR)
  Receive Date: 20160315
  Receipt Date: 20160315
  Transmission Date: 20160526
  Serious: Yes (Hospitalization)
  Sender: FDA-Public Use
  Company Number: FR-VALIDUS PHARMACEUTICALS LLC-FR-2016VAL000482

PATIENT
  Age: 81 Year
  Sex: Male

DRUGS (1)
  1. FUROSEMIDE. [Suspect]
     Active Substance: FUROSEMIDE
     Indication: CARDIAC FAILURE
     Dosage: UNK
     Dates: start: 2014, end: 2014

REACTIONS (1)
  - Renal failure [Recovering/Resolving]

NARRATIVE: CASE EVENT DATE: 201408
